FAERS Safety Report 11639840 (Version 3)
Quarter: 2015Q4

REPORT INFORMATION
  Report Type: Spontaneous
  Country: GB (occurrence: GB)
  Receive Date: 20151019
  Receipt Date: 20151028
  Transmission Date: 20160304
  Serious: Yes (Hospitalization, Other)
  Sender: FDA-Public Use
  Company Number: GB-AMGEN-GBRSP2015108983

PATIENT
  Age: 29 Year
  Sex: Male

DRUGS (1)
  1. ARANESP [Suspect]
     Active Substance: DARBEPOETIN ALFA
     Indication: PRODUCT USED FOR UNKNOWN INDICATION
     Dosage: 0.65 ML (130 MCG)
     Route: 065

REACTIONS (3)
  - Gastric ulcer [Unknown]
  - Renal transplant [Unknown]
  - Hospitalisation [Unknown]

NARRATIVE: CASE EVENT DATE: 201509
